FAERS Safety Report 5523518-7 (Version None)
Quarter: 2007Q4

REPORT INFORMATION
  Report Type: 
  Country: None (occurrence: None)
  Receive Date: 20071119
  Receipt Date: 20071119
  Transmission Date: 20080405
  Serious: Yes (Hospitalization, Other)
  Sender: FDA-Public Use
  Company Number: None

PATIENT
  Age: 47 Year
  Sex: Male
  Weight: 86.1834 kg

DRUGS (2)
  1. PREDNISONE [Suspect]
     Indication: DRUG HYPERSENSITIVITY
     Dosage: 4 DOSES ~ EVERY 4 HOURS PO
     Route: 048
     Dates: start: 20071113, end: 20071113
  2. PHENYTOIN [Suspect]
     Indication: CONVULSION
     Dosage: 7 DOSES ~ EVERY 12 HOURS PO
     Route: 048
     Dates: start: 20071111, end: 20071114

REACTIONS (12)
  - ADVERSE DRUG REACTION [None]
  - AGGRESSION [None]
  - AGITATION [None]
  - ANGER [None]
  - BLOOD GLUCOSE DECREASED [None]
  - CONFUSIONAL STATE [None]
  - EMOTIONAL DISORDER [None]
  - INSOMNIA [None]
  - REFUSAL OF TREATMENT BY PATIENT [None]
  - SHARED PSYCHOTIC DISORDER [None]
  - SPEECH DISORDER [None]
  - VERBAL ABUSE [None]
